FAERS Safety Report 20108748 (Version 1)
Quarter: 2021Q4

REPORT INFORMATION
  Report Type: Spontaneous
  Country: IN (occurrence: IN)
  Receive Date: 20211124
  Receipt Date: 20211124
  Transmission Date: 20220303
  Serious: Yes (Hospitalization)
  Sender: FDA-Public Use
  Company Number: IN-MYLANLABS-2021M1086566

PATIENT
  Age: 38 Year

DRUGS (1)
  1. DOCETAXEL [Suspect]
     Active Substance: DOCETAXEL
     Indication: Breast cancer stage III
     Dosage: 75 MILLIGRAM/SQ. METER, Q3W RECEIVED 3 CYCLES
     Route: 065

REACTIONS (1)
  - Interstitial lung disease [Recovered/Resolved]
